FAERS Safety Report 23025999 (Version 1)
Quarter: 2023Q4

REPORT INFORMATION
  Report Type: Spontaneous
  Country: CN (occurrence: CN)
  Receive Date: 20231004
  Receipt Date: 20231004
  Transmission Date: 20240110
  Serious: No
  Sender: FDA-Public Use
  Company Number: CN-ALKEM LABORATORIES LIMITED-CN-ALKEM-2023-07977

PATIENT
  Age: 6 Decade
  Sex: Male
  Weight: 70 kg

DRUGS (5)
  1. SIROLIMUS [Suspect]
     Active Substance: SIROLIMUS
     Indication: Retroperitoneal fibrosis
     Dosage: 2 MG/DAY
     Route: 065
  2. SIROLIMUS [Suspect]
     Active Substance: SIROLIMUS
     Dosage: UNK (AROUND 1MG/ DAY THEREAFTER, WITH PLASMA DRUG CONCENTRATION MONITORED AT 2 WEEKS, 12 WEEKS AND 4
     Route: 065
  3. PREDNISONE ACETATE [Suspect]
     Active Substance: PREDNISONE ACETATE
     Indication: Retroperitoneal fibrosis
     Dosage: 0.8 MILLIGRAM/KILOGRAM, QD
     Route: 065
  4. PREDNISONE ACETATE [Suspect]
     Active Substance: PREDNISONE ACETATE
     Dosage: UNK (REDUCED BY 5 MG EVERY 14 DAYS UNTIL REACHING 30 MG/DAY)
     Route: 065
  5. PREDNISONE ACETATE [Suspect]
     Active Substance: PREDNISONE ACETATE
     Dosage: UNK (REDUCED BY 2.5 MG EVERY 2 WEEKS UNTIL DISCONTINUATION)
     Route: 065

REACTIONS (1)
  - Hyperglycaemia [Recovered/Resolved]
